FAERS Safety Report 23690852 (Version 1)
Quarter: 2024Q1

REPORT INFORMATION
  Report Type: Spontaneous
  Country: US (occurrence: None)
  Receive Date: 20240329
  Receipt Date: 20240329
  Transmission Date: 20240410
  Serious: No
  Sender: FDA-Public Use
  Company Number: None

PATIENT
  Age: 48 Year

DRUGS (1)
  1. BOTULINUM TOXIN TYPE A [Suspect]
     Active Substance: BOTULINUM TOXIN TYPE A
     Dosage: OTHER QUANTITY : 150 COUNT BOX;?
     Dates: start: 20240229

REACTIONS (12)
  - Self-medication [None]
  - Vomiting [None]
  - Abdominal pain [None]
  - Vision blurred [None]
  - Dysarthria [None]
  - Fatigue [None]
  - Dysphonia [None]
  - Dysphonia [None]
  - Dry mouth [None]
  - Dysphagia [None]
  - Dyspnoea [None]
  - Paraesthesia [None]

NARRATIVE: CASE EVENT DATE: 20240302
